FAERS Safety Report 7109519-6 (Version None)
Quarter: 2010Q4

REPORT INFORMATION
  Report Type: 
  Country: None (occurrence: None)
  Receive Date: 20101118
  Receipt Date: 20101108
  Transmission Date: 20110411
  Serious: No
  Sender: FDA-Public Use
  Company Number: US-BIOGENIDEC-2010BI039845

PATIENT
  Age: 44 Year
  Sex: Female

DRUGS (3)
  1. TYSABRI [Suspect]
     Indication: MULTIPLE SCLEROSIS
     Route: 042
     Dates: start: 20070815, end: 20081003
  2. TYSABRI [Suspect]
     Route: 042
     Dates: start: 20090804
  3. BIRTH CONTROL (NOS) [Concomitant]
     Indication: UTERINE LEIOMYOMA
     Dates: start: 20090801

REACTIONS (8)
  - FATIGUE [None]
  - HYSTERECTOMY [None]
  - MUSCULAR WEAKNESS [None]
  - PAIN IN EXTREMITY [None]
  - PARAESTHESIA [None]
  - STRESS [None]
  - UPPER RESPIRATORY TRACT CONGESTION [None]
  - URINARY TRACT INFECTION [None]
